FAERS Safety Report 25751944 (Version 1)
Quarter: 2025Q3

REPORT INFORMATION
  Report Type: Report from Study
  Country: US (occurrence: US)
  Receive Date: 20250902
  Receipt Date: 20250902
  Transmission Date: 20251020
  Serious: Yes (Other)
  Sender: GILEAD
  Company Number: US-GILEAD-2025-0725288

PATIENT
  Age: 18 Year
  Sex: Male

DRUGS (1)
  1. AZTREONAM LYSINE [Suspect]
     Active Substance: AZTREONAM LYSINE
     Indication: Cystic fibrosis lung
     Dosage: 75 MG: INHALE 75 MG BY MOUTH VIA NEBULIZER THREE TIMES DAILY FOR 28 DAYS EVERY OTHER MONTH
     Route: 055
     Dates: start: 20181207

REACTIONS (3)
  - Cystic fibrosis [Unknown]
  - Chest pain [Unknown]
  - Chest discomfort [Unknown]
